FAERS Safety Report 19200493 (Version 1)
Quarter: 2021Q2

REPORT INFORMATION
  Report Type: Spontaneous
  Country: JP (occurrence: JP)
  Receive Date: 20210430
  Receipt Date: 20210430
  Transmission Date: 20210717
  Serious: Yes (Hospitalization, Other)
  Sender: FDA-Public Use
  Company Number: JP-ACCORD-223659

PATIENT
  Age: 30 Year
  Sex: Female

DRUGS (6)
  1. RAMELTEON [Concomitant]
     Active Substance: RAMELTEON
     Indication: INSOMNIA
  2. BROTIZOLAM [Concomitant]
     Active Substance: BROTIZOLAM
     Indication: BIPOLAR I DISORDER
     Dosage: AS NEEDED
  3. ARIPIPRAZOLE. [Suspect]
     Active Substance: ARIPIPRAZOLE
     Indication: BIPOLAR I DISORDER
     Dosage: REDUCED TO?18 MG/D
  4. LAMOTRIGINE. [Concomitant]
     Active Substance: LAMOTRIGINE
     Indication: BIPOLAR I DISORDER
  5. FLUNITRAZEPAM [Concomitant]
     Active Substance: FLUNITRAZEPAM
     Indication: BIPOLAR I DISORDER
     Dosage: AS NEEDED
  6. MIDODRINE [Concomitant]
     Active Substance: MIDODRINE
     Indication: BIPOLAR I DISORDER

REACTIONS (5)
  - Orthostatic hypotension [Recovered/Resolved]
  - Hyperacusis [Recovered/Resolved]
  - Insomnia [Recovered/Resolved]
  - Syncope [Recovered/Resolved]
  - Feeling abnormal [Recovered/Resolved]
